FAERS Safety Report 5612626-8 (Version None)
Quarter: 2008Q1

REPORT INFORMATION
  Report Type: 
  Country: None (occurrence: None)
  Receive Date: 20080204
  Receipt Date: 20080125
  Transmission Date: 20080703
  Serious: Yes (Other)
  Sender: FDA-Public Use
  Company Number: B0506123A

PATIENT
  Age: 63 Year
  Sex: Male
  Weight: 80 kg

DRUGS (1)
  1. FORTUM [Suspect]
     Dosage: 12G PER DAY
     Route: 042

REACTIONS (6)
  - ACUTE PULMONARY OEDEMA [None]
  - DIZZINESS [None]
  - FATIGUE [None]
  - NERVOUS SYSTEM DISORDER [None]
  - OVERDOSE [None]
  - RESPIRATORY DISORDER [None]
